FAERS Safety Report 21501394 (Version 4)
Quarter: 2023Q1

REPORT INFORMATION
  Report Type: Spontaneous
  Country: US (occurrence: US)
  Receive Date: 20221025
  Receipt Date: 20230109
  Transmission Date: 20230418
  Serious: Yes (Life-Threatening, Hospitalization, Other)
  Sender: FDA-Public Use
  Company Number: US-GLENMARK PHARMACEUTICALS-2022GMK075988

PATIENT
  Age: 55 Year
  Sex: Female
  Weight: 52.9 kg

DRUGS (3)
  1. TACROLIMUS [Suspect]
     Active Substance: TACROLIMUS
     Indication: Immunosuppressant drug therapy
     Dosage: 0.5 MILLIGRAM, BID (EVERY 12 HOURS)
     Route: 065
  2. MYCOPHENOLIC ACID [Suspect]
     Active Substance: MYCOPHENOLIC ACID
     Indication: Immunosuppressant drug therapy
     Dosage: 180 MILLIGRAM, BID (EVERY 12 HOURS)
     Route: 065
  3. PREDNISONE [Suspect]
     Active Substance: PREDNISONE
     Indication: Immunosuppressant drug therapy
     Dosage: 5 MILLIGRAM, OD
     Route: 065

REACTIONS (4)
  - Pneumonia cryptococcal [Recovered/Resolved]
  - Meningitis cryptococcal [Recovered/Resolved]
  - Cryptococcosis [Recovered/Resolved]
  - Acute kidney injury [Recovering/Resolving]
